FAERS Safety Report 6069655-2 (Version None)
Quarter: 2009Q1

REPORT INFORMATION
  Report Type: 
  Country: None (occurrence: None)
  Receive Date: 20090209
  Receipt Date: 20090204
  Transmission Date: 20090719
  Serious: Yes (Other)
  Sender: FDA-Public Use
  Company Number: PH-JNJFOC-20090201143

PATIENT
  Age: 8 Year
  Sex: Male

DRUGS (2)
  1. CONCERTA [Suspect]
     Indication: DISTURBANCE IN ATTENTION
     Route: 065
  2. CONCERTA [Suspect]
     Indication: AUTISM
     Route: 065

REACTIONS (3)
  - CHANGE IN SUSTAINED ATTENTION [None]
  - HEAD BANGING [None]
  - POSTURE ABNORMAL [None]
